FAERS Safety Report 21118637 (Version 5)
Quarter: 2022Q4

REPORT INFORMATION
  Report Type: Report from Study
  Country: IT (occurrence: IT)
  Receive Date: 20220722
  Receipt Date: 20221010
  Transmission Date: 20230112
  Serious: Yes (Other)
  Sender: FDA-Public Use
  Company Number: IT-PFIZER INC-202200467945

PATIENT
  Sex: Male
  Weight: 2.55 kg

DRUGS (10)
  1. AVIBACTAM SODIUM\CEFTAZIDIME [Suspect]
     Active Substance: AVIBACTAM SODIUM\CEFTAZIDIME
     Indication: Sepsis
     Dosage: [CEFTAZIDIME 52 MG]/[AVIBACTAM 13 MG], TID
     Route: 042
     Dates: start: 20220321, end: 20220327
  2. VANCOMYCIN [Suspect]
     Active Substance: VANCOMYCIN
     Indication: Sepsis
     Dosage: 26 MG, TID
     Route: 042
     Dates: start: 20220321, end: 20220327
  3. AMIKACIN [Concomitant]
     Active Substance: AMIKACIN
     Indication: Sepsis
     Dosage: 39 MG, SINGLE, MOST RECENT DOSE TIME 21-MAR-2022 AT 17:00
     Route: 042
     Dates: start: 20220321, end: 20220322
  4. NETILMICIN [Concomitant]
     Active Substance: NETILMICIN
     Dosage: UNK
     Dates: start: 20220316, end: 20220317
  5. AMPICILLIN [Concomitant]
     Active Substance: AMPICILLIN
     Dosage: UNK
     Dates: start: 20220316, end: 20220317
  6. FUROSEMIDE [Concomitant]
     Active Substance: FUROSEMIDE
     Dosage: UNK
     Dates: start: 20220314, end: 20220314
  7. DIAZOXIDE [Concomitant]
     Active Substance: DIAZOXIDE
     Dosage: UNK
     Dates: start: 20220310
  8. GLUCAGONE [Concomitant]
     Dosage: UNK
     Dates: start: 20220310, end: 20220316
  9. DOPAMINE [Concomitant]
     Active Substance: DOPAMINE HYDROCHLORIDE
     Dosage: UNK
     Dates: start: 20220322, end: 20220323
  10. ETHACRYNIC ACID [Concomitant]
     Active Substance: ETHACRYNIC ACID
     Dosage: UNK
     Dates: start: 20220322, end: 20220323

REACTIONS (3)
  - Neutropenia neonatal [Recovered/Resolved]
  - Neonatal respiratory failure [Recovered/Resolved]
  - Oliguria [Recovered/Resolved]

NARRATIVE: CASE EVENT DATE: 20220322
